FAERS Safety Report 9718201 (Version 2)
Quarter: 2013Q4

REPORT INFORMATION
  Report Type: Spontaneous
  Country: IT (occurrence: IT)
  Receive Date: 20131127
  Receipt Date: 20131223
  Transmission Date: 20140711
  Serious: Yes (Other)
  Sender: FDA-Public Use
  Company Number: IT-ELI_LILLY_AND_COMPANY-IT201311005896

PATIENT
  Age: 43 Year
  Sex: Male

DRUGS (2)
  1. HUMALOG LISPRO [Suspect]
     Indication: DIABETES MELLITUS
     Dosage: 9 IU, QD
     Route: 058
     Dates: start: 20130101, end: 20130814
  2. LANTUS [Suspect]
     Indication: DIABETES MELLITUS
     Dosage: 22 IU, QD
     Route: 058
     Dates: start: 20130101, end: 20130814

REACTIONS (3)
  - Hypoglycaemia [Unknown]
  - Psychomotor hyperactivity [Unknown]
  - Somnolence [Unknown]
